FAERS Safety Report 10227571 (Version 1)
Quarter: 2014Q2

REPORT INFORMATION
  Report Type: Spontaneous
  Country: GB (occurrence: GB)
  Receive Date: 20140610
  Receipt Date: 20140610
  Transmission Date: 20141212
  Serious: Yes (Hospitalization, Disabling)
  Sender: FDA-Public Use
  Company Number: GB-TEVA-485927ISR

PATIENT
  Age: 52 Year
  Sex: Male

DRUGS (10)
  1. ATORVASTATIN [Suspect]
     Dosage: NIGHT
     Route: 048
  2. CIPROFLOXACIN [Suspect]
     Indication: ANTIBIOTIC PROPHYLAXIS
     Route: 048
  3. ADCAL-D3 [Concomitant]
  4. NUTRITIONAL SUPPLEMENT [Concomitant]
  5. METFORMIN [Concomitant]
  6. MULTIVITAMIN [Concomitant]
  7. RAMIPRIL [Concomitant]
  8. SPIRONOLACTONE [Concomitant]
  9. THIAMINE [Concomitant]
  10. VITAMIN B COMPLEX STRONG [Concomitant]

REACTIONS (3)
  - Myopathy [Not Recovered/Not Resolved]
  - Muscular weakness [Unknown]
  - Muscle spasms [Unknown]
